FAERS Safety Report 24438691 (Version 1)
Quarter: 2024Q4

REPORT INFORMATION
  Report Type: Spontaneous
  Country: US (occurrence: None)
  Receive Date: 20241015
  Receipt Date: 20241015
  Transmission Date: 20250115
  Serious: No
  Sender: Public
  Company Number: None

PATIENT
  Age: 67 Year
  Sex: Male

DRUGS (4)
  1. MYCOPHENOLIC ACID [Suspect]
     Active Substance: MYCOPHENOLIC ACID
     Indication: Pancreas transplant
     Dosage: FREQUENCY : TWICE A DAY;?
     Route: 048
     Dates: start: 2020
  2. MYCOPHENOLIC ACID [Suspect]
     Active Substance: MYCOPHENOLIC ACID
     Indication: Renal transplant
  3. TACROLIMUS [Suspect]
     Active Substance: TACROLIMUS
     Indication: Pancreas transplant
     Dosage: FREQUENCY : TWICE A DAY;?
     Route: 048
     Dates: start: 2020
  4. TACROLIMUS [Suspect]
     Active Substance: TACROLIMUS
     Indication: Renal transplant

REACTIONS (3)
  - Pain in extremity [None]
  - Localised infection [None]
  - Gout [None]

NARRATIVE: CASE EVENT DATE: 20241001
